FAERS Safety Report 10201125 (Version 1)
Quarter: 2014Q2

REPORT INFORMATION
  Report Type: Spontaneous
  Country: US (occurrence: US)
  Receive Date: 20140528
  Receipt Date: 20140528
  Transmission Date: 20141212
  Serious: Yes (Other)
  Sender: FDA-Public Use
  Company Number: US-PFIZER INC-2014143971

PATIENT
  Age: 62 Year
  Sex: Male
  Weight: 79.37 kg

DRUGS (1)
  1. GABAPENTIN [Suspect]
     Indication: TRIGEMINAL NERVE DISORDER
     Dosage: 600 MG, 3X/DAY
     Dates: start: 20140518

REACTIONS (6)
  - Convulsion [Unknown]
  - Dizziness [Unknown]
  - Coordination abnormal [Unknown]
  - Viral infection [Unknown]
  - Fatigue [Unknown]
  - Irritability [Unknown]
